FAERS Safety Report 4404613-2 (Version None)
Quarter: 2004Q3

REPORT INFORMATION
  Report Type: 
  Country: None (occurrence: None)
  Receive Date: 20040720
  Receipt Date: 20040708
  Transmission Date: 20050211
  Serious: Yes (Hospitalization)
  Sender: FDA-Public Use
  Company Number: 04P-056-0252963-00

PATIENT
  Age: 58 Year
  Sex: Male
  Weight: 62 kg

DRUGS (15)
  1. NORVIR [Suspect]
     Dosage: 200 MG, PER ORAL
     Route: 048
  2. KALETRA [Suspect]
     Dates: start: 20030415
  3. T-20 [Suspect]
     Dosage: SUBCUTANEOUS
     Route: 058
     Dates: start: 20030416, end: 20030420
  4. ENFUVIRITIDE [Suspect]
     Dosage: 90 MG, 2 IN 1 D
     Dates: start: 20030416, end: 20030422
  5. SAQUINAVIR MESILATE [Suspect]
     Dates: start: 20030415, end: 20030429
  6. PREDNISONE [Concomitant]
  7. AZITHROMYCIN [Concomitant]
  8. FLUCONAZOLE [Concomitant]
  9. TENOFOVIR [Concomitant]
  10. LAMIVUDINE [Concomitant]
  11. ABACAVIR [Concomitant]
  12. TRIMETHOPRIM [Concomitant]
  13. BACTRIM [Concomitant]
  14. ABACAVIR SULFATE [Concomitant]
  15. FLUCONAZOLE [Concomitant]

REACTIONS (2)
  - GASTROINTESTINAL TOXICITY [None]
  - VOMITING [None]
